FAERS Safety Report 21068303 (Version 1)
Quarter: 2022Q3

REPORT INFORMATION
  Report Type: Spontaneous
  Country: US (occurrence: US)
  Receive Date: 20220712
  Receipt Date: 20220712
  Transmission Date: 20221027
  Serious: No
  Sender: FDA-Public Use
  Company Number: US-GLENMARK PHARMACEUTICALS-2022GMK071426

PATIENT

DRUGS (1)
  1. TRIAMCINOLONE ACETONIDE [Suspect]
     Active Substance: TRIAMCINOLONE ACETONIDE
     Indication: Rash
     Dosage: UNK, BID
     Route: 061
     Dates: start: 20220311

REACTIONS (5)
  - Product dispensing error [Unknown]
  - Product packaging issue [Unknown]
  - Drug ineffective [Unknown]
  - Accidental exposure to product [Unknown]
  - No adverse event [Unknown]
